FAERS Safety Report 8843596 (Version 4)
Quarter: 2013Q1

REPORT INFORMATION
  Report Type: Spontaneous
  Country: US (occurrence: US)
  Receive Date: 20121016
  Receipt Date: 20130114
  Transmission Date: 20140127
  Serious: Yes (Hospitalization, Other)
  Sender: FDA-Public Use
  Company Number: US-009507513-1201USA03054

PATIENT
  Sex: 0

DRUGS (4)
  1. FOSAMAX [Suspect]
     Indication: OSTEOPOROSIS
     Dosage: 10 MG, QD
     Route: 048
     Dates: start: 1995
  2. FOSAMAX [Suspect]
     Dosage: 70 MG, QW
     Route: 048
     Dates: end: 200803
  3. ALENDRONATE SODIUM [Suspect]
     Indication: OSTEOPOROSIS
     Dosage: 70 MG, QW
     Route: 048
     Dates: start: 200803, end: 201001
  4. VITAMINS (UNSPECIFIED) [Concomitant]
     Dosage: UNK, QD

REACTIONS (26)
  - Femur fracture [Unknown]
  - Intramedullary rod insertion [Unknown]
  - Surgery [Unknown]
  - Hypomagnesaemia [Unknown]
  - Hypokalaemia [Unknown]
  - Urinary tract infection [Unknown]
  - Haemorrhagic anaemia [Unknown]
  - Haemarthrosis [Unknown]
  - Calcium deficiency [Unknown]
  - Blood cholesterol increased [Not Recovered/Not Resolved]
  - Arthritis [Unknown]
  - Parkinson^s disease [Not Recovered/Not Resolved]
  - Eye contusion [Unknown]
  - Contusion [Unknown]
  - Osteopenia [Unknown]
  - Rotator cuff syndrome [Unknown]
  - Cyst [Unknown]
  - Osteoarthritis [Unknown]
  - Spinal column stenosis [Unknown]
  - Spinal osteoarthritis [Unknown]
  - Hyperlipidaemia [Unknown]
  - Sleep apnoea syndrome [Unknown]
  - Hypercholesterolaemia [Unknown]
  - Back pain [Not Recovered/Not Resolved]
  - Pain in extremity [Recovered/Resolved]
  - Gastrooesophageal reflux disease [Unknown]
